FAERS Safety Report 8938193 (Version 2)
Quarter: 2013Q1

REPORT INFORMATION
  Report Type: Spontaneous
  Country: US (occurrence: US)
  Receive Date: 20121130
  Receipt Date: 20130124
  Transmission Date: 20140127
  Serious: Yes (Other)
  Sender: FDA-Public Use
  Company Number: US-JNJFOC-20121111940

PATIENT
  Sex: Male
  Weight: 36.29 kg

DRUGS (9)
  1. INVEGA [Suspect]
     Indication: ENCEPHALOPATHY
     Route: 048
     Dates: start: 20121105
  2. INVEGA [Suspect]
     Indication: ENCEPHALOPATHY
     Route: 048
     Dates: start: 20120815, end: 201209
  3. INVEGA [Suspect]
     Indication: ENCEPHALOPATHY
     Route: 048
     Dates: start: 201209, end: 20121105
  4. CLOMIPRAMINE [Concomitant]
     Indication: ANXIETY
     Route: 048
  5. VITAMIN D3 [Concomitant]
     Route: 065
  6. MULTIVITAMINS [Concomitant]
     Route: 065
  7. PROBIOTICS [Concomitant]
     Route: 065
  8. VITAMIN C [Concomitant]
     Route: 065
  9. FOLATE [Concomitant]
     Route: 065

REACTIONS (4)
  - Mood swings [Recovered/Resolved]
  - Joint stiffness [Recovered/Resolved]
  - Muscle spasms [Recovered/Resolved]
  - Drug ineffective [Unknown]
